FAERS Safety Report 22094448 (Version 1)
Quarter: 2023Q1

REPORT INFORMATION
  Report Type: Spontaneous
  Country: US (occurrence: US)
  Receive Date: 20230314
  Receipt Date: 20230314
  Transmission Date: 20230418
  Serious: Yes (Other)
  Sender: FDA-Public Use
  Company Number: US-ALLERGAN-2300494US

PATIENT
  Sex: Female

DRUGS (1)
  1. REFRESH LIQUIGEL [Suspect]
     Active Substance: CARBOXYMETHYLCELLULOSE SODIUM
     Indication: Corneal dystrophy
     Dosage: UNK UNK, QHS
     Route: 047

REACTIONS (5)
  - Cerebral disorder [Unknown]
  - Eye injury [Unknown]
  - Eye swelling [Recovered/Resolved]
  - Product use in unapproved indication [Unknown]
  - Eye pain [Unknown]
